FAERS Safety Report 13287484 (Version 1)
Quarter: 2017Q1

REPORT INFORMATION
  Report Type: Spontaneous
  Country: US (occurrence: US)
  Receive Date: 20170302
  Receipt Date: 20170302
  Transmission Date: 20170428
  Serious: No
  Sender: FDA-Public Use
  Company Number: US-009507513-1702USA003629

PATIENT
  Age: 45 Year
  Sex: Female

DRUGS (2)
  1. SINGULAIR [Suspect]
     Active Substance: MONTELUKAST SODIUM
     Indication: HYPERSENSITIVITY
     Dosage: 5MG / TWO TABLETS ONCE A DAY
     Route: 048
     Dates: start: 2007
  2. LORATADINE. [Concomitant]
     Active Substance: LORATADINE
     Route: 048

REACTIONS (3)
  - Intentional product misuse [Recovering/Resolving]
  - Product taste abnormal [Unknown]
  - Drug administered to patient of inappropriate age [Unknown]

NARRATIVE: CASE EVENT DATE: 20170131
